FAERS Safety Report 19742756 (Version 1)
Quarter: 2021Q3

REPORT INFORMATION
  Report Type: Spontaneous
  Country: US (occurrence: US)
  Receive Date: 20210823
  Receipt Date: 20210823
  Transmission Date: 20211014
  Serious: Yes (Disabling, Other)
  Sender: FDA-Public Use
  Company Number: None

PATIENT
  Age: 58 Year
  Sex: Female
  Weight: 78.75 kg

DRUGS (1)
  1. SULFAMETHOXAZOLE?TMP DS TABLET [Suspect]
     Active Substance: SULFAMETHOXAZOLE\TRIMETHOPRIM
     Indication: URINARY TRACT INFECTION
     Dosage: ?          QUANTITY:1 TABLET(S);?
     Route: 048
     Dates: start: 20210807, end: 20210807

REACTIONS (5)
  - Syncope [None]
  - Dizziness [None]
  - Contusion [None]
  - Vomiting [None]
  - Pyrexia [None]

NARRATIVE: CASE EVENT DATE: 20210807
